FAERS Safety Report 11538960 (Version 1)
Quarter: 2015Q3

REPORT INFORMATION
  Report Type: Spontaneous
  Country: US (occurrence: US)
  Receive Date: 20150923
  Receipt Date: 20150923
  Transmission Date: 20151125
  Serious: No
  Sender: FDA-Public Use
  Company Number: PHEH2015US012131

PATIENT
  Age: 55 Year
  Sex: Female

DRUGS (2)
  1. MULTIVITAMIN//VITAMINS NOS [Concomitant]
     Active Substance: VITAMINS
     Indication: PRODUCT USED FOR UNKNOWN INDICATION
     Route: 065
  2. LAMISIL [Suspect]
     Active Substance: TERBINAFINE HYDROCHLORIDE
     Indication: TINEA PEDIS
     Dosage: 250 MG, QD
     Route: 065
     Dates: start: 201411, end: 201501

REACTIONS (1)
  - Fungal skin infection [Unknown]

NARRATIVE: CASE EVENT DATE: 201505
